FAERS Safety Report 4383937-1 (Version None)
Quarter: 2004Q2

REPORT INFORMATION
  Report Type: 
  Country: None (occurrence: None)
  Receive Date: 20040621
  Receipt Date: 20040616
  Transmission Date: 20050107
  Serious: Yes (Death, Hospitalization)
  Sender: FDA-Public Use
  Company Number: 2004-06-1007

PATIENT
  Age: 47 Year
  Sex: Female

DRUGS (2)
  1. INTRON A [Suspect]
     Indication: MALIGNANT MELANOMA
     Dosage: INDUCTION INTRAVENOUS
     Route: 042
     Dates: end: 20040603
  2. KYTRIL [Concomitant]

REACTIONS (1)
  - PANCREATITIS ACUTE [None]
